FAERS Safety Report 20027161 (Version 3)
Quarter: 2021Q4

REPORT INFORMATION
  Report Type: Report from Study
  Country: ES (occurrence: ES)
  Receive Date: 20211103
  Receipt Date: 20211116
  Transmission Date: 20220304
  Serious: No
  Sender: FDA-Public Use
  Company Number: ES-ABBVIE-21K-144-4143940-00

PATIENT
  Age: 79 Year
  Sex: Female

DRUGS (3)
  1. CARBIDOPA\LEVODOPA [Suspect]
     Active Substance: CARBIDOPA\LEVODOPA
     Indication: Parkinson^s disease
     Route: 050
     Dates: start: 20190717
  2. CARBIDOPA\LEVODOPA [Suspect]
     Active Substance: CARBIDOPA\LEVODOPA
  3. FOSFOMYCIN [Concomitant]
     Active Substance: FOSFOMYCIN
     Indication: Prophylaxis urinary tract infection
     Route: 048

REACTIONS (7)
  - Acne [Recovered/Resolved]
  - Granuloma [Unknown]
  - Abdominal discomfort [Recovered/Resolved]
  - Stoma site discomfort [Recovered/Resolved]
  - Stoma site erythema [Recovered/Resolved]
  - Stoma site irritation [Recovered/Resolved]
  - Stoma site erythema [Unknown]

NARRATIVE: CASE EVENT DATE: 20211001
